FAERS Safety Report 12066401 (Version 1)
Quarter: 2016Q1

REPORT INFORMATION
  Report Type: Spontaneous
  Country: US (occurrence: None)
  Receive Date: 20160210
  Receipt Date: 20160210
  Transmission Date: 20160526
  Serious: Yes (Other)
  Sender: FDA-Public Use
  Company Number: None

PATIENT
  Age: 29 Year
  Sex: Female
  Weight: 60.78 kg

DRUGS (1)
  1. SUBOXONE [Suspect]
     Active Substance: BUPRENORPHINE HYDROCHLORIDE\NALOXONE HYDROCHLORIDE
     Indication: DRUG ABUSE
     Route: 060
     Dates: start: 201304, end: 201311

REACTIONS (3)
  - Reaction to azo-dyes [None]
  - Incorrect route of drug administration [None]
  - Wrong technique in product usage process [None]

NARRATIVE: CASE EVENT DATE: 20131107
